FAERS Safety Report 5448845-3 (Version None)
Quarter: 2007Q3

REPORT INFORMATION
  Report Type: 
  Country: None (occurrence: None)
  Receive Date: 20070911
  Receipt Date: 20070817
  Transmission Date: 20080115
  Serious: Yes (Disabling)
  Sender: FDA-Public Use
  Company Number: US-BRISTOL-MYERS SQUIBB COMPANY-13848858

PATIENT
  Age: 56 Year
  Sex: Female

DRUGS (1)
  1. EMSAM [Suspect]
     Indication: DEPRESSION
     Route: 062
     Dates: start: 20070713

REACTIONS (11)
  - ERYTHEMA [None]
  - FEAR [None]
  - FEELING HOT [None]
  - FEELING JITTERY [None]
  - HALLUCINATION, VISUAL [None]
  - HEADACHE [None]
  - HYPERHIDROSIS [None]
  - INSOMNIA [None]
  - JOINT STIFFNESS [None]
  - NUCHAL RIGIDITY [None]
  - PARANOIA [None]
